FAERS Safety Report 7883305-1 (Version None)
Quarter: 2011Q4

REPORT INFORMATION
  Report Type: 
  Country: None (occurrence: None)
  Receive Date: 20111102
  Receipt Date: 20111024
  Transmission Date: 20120403
  Serious: Yes (Other)
  Sender: FDA-Public Use
  Company Number: PHHY2011MX94768

PATIENT
  Sex: Female

DRUGS (2)
  1. ZOLEDRONOC ACID [Suspect]
     Indication: OSTEOPOROSIS
     Dosage: 5 MG\100ML PER YEAR
     Route: 042
     Dates: start: 20071001, end: 20111001
  2. NOLVADEX [Concomitant]
     Indication: NEOPLASM PROPHYLAXIS
     Dosage: 1 DF, QD

REACTIONS (2)
  - BREAST CANCER [None]
  - DISEASE PROGRESSION [None]
